FAERS Safety Report 8055895-X (Version None)
Quarter: 2012Q1

REPORT INFORMATION
  Report Type: 
  Country: None (occurrence: None)
  Receive Date: 20120119
  Receipt Date: 20120112
  Transmission Date: 20120608
  Serious: Yes (Other)
  Sender: FDA-Public Use
  Company Number: EE-AMGEN-KDL432055

PATIENT
  Age: 4 Year
  Sex: Female
  Weight: 16.3 kg

DRUGS (5)
  1. ARANESP [Suspect]
     Indication: RENAL FAILURE CHRONIC
     Dosage: 10 MUG, Q2WK
     Dates: start: 20100519
  2. AMLODIPINE BESYLATE [Concomitant]
     Dosage: 1 MG, UNK
  3. ARANESP [Suspect]
     Dosage: 20 MUG, Q3WK
     Route: 058
  4. ENALAPRIL MALEATE [Concomitant]
     Dosage: 1.5 MG, UNK
  5. CALCITRIOL [Concomitant]
     Dosage: .25 MG, UNK

REACTIONS (5)
  - PLATELET COUNT DECREASED [None]
  - HAEMOGLOBIN DECREASED [None]
  - OTITIS MEDIA ACUTE [None]
  - RED BLOOD CELL COUNT DECREASED [None]
  - WHITE BLOOD CELL COUNT DECREASED [None]
